FAERS Safety Report 9452369 (Version 1)
Quarter: 2013Q3

REPORT INFORMATION
  Report Type: Spontaneous
  Country: BD (occurrence: BD)
  Receive Date: 20130812
  Receipt Date: 20130812
  Transmission Date: 20140515
  Serious: Yes (Hospitalization)
  Sender: FDA-Public Use
  Company Number: BD-AMGEN-BGDSP2013055588

PATIENT
  Sex: Female

DRUGS (5)
  1. NEULASTIM [Suspect]
     Indication: PRODUCT USED FOR UNKNOWN INDICATION
     Dosage: 6 MG, ONCE
     Route: 058
     Dates: start: 20130714
  2. CYCLOPHOSPHAMIDE [Concomitant]
     Indication: NON-HODGKIN^S LYMPHOMA
     Dosage: 1000 MG, 1 IN 21 D
     Dates: start: 20130713
  3. RITUXIMAB [Concomitant]
     Indication: NON-HODGKIN^S LYMPHOMA
     Dosage: 600 MG, 1 IN  21 D
     Route: 042
     Dates: start: 20130718
  4. VINCRISTINE [Concomitant]
     Indication: NON-HODGKIN^S LYMPHOMA
     Dosage: 1.5 MG, 1 IN 21 D
     Dates: start: 20130713
  5. ETOPOSIDE [Concomitant]
     Indication: NON-HODGKIN^S LYMPHOMA
     Dosage: 300 MEQ, 1 IN 21 D
     Route: 048
     Dates: start: 20130713

REACTIONS (1)
  - Neutropenic sepsis [Recovered/Resolved]
